FAERS Safety Report 10152416 (Version 2)
Quarter: 2014Q2

REPORT INFORMATION
  Report Type: Spontaneous
  Country: US (occurrence: US)
  Receive Date: 20140505
  Receipt Date: 20140505
  Transmission Date: 20141212
  Serious: No
  Sender: FDA-Public Use
  Company Number: US-TEVA-388302USA

PATIENT
  Sex: Male

DRUGS (2)
  1. CLARAVIS [Suspect]
     Route: 048
     Dates: start: 20121121, end: 20130215
  2. MOTRIN [Suspect]

REACTIONS (1)
  - Liver function test abnormal [Recovered/Resolved]
